FAERS Safety Report 7294705-5 (Version None)
Quarter: 2011Q1

REPORT INFORMATION
  Report Type: 
  Country: None (occurrence: None)
  Receive Date: 20110216
  Receipt Date: 20110202
  Transmission Date: 20110831
  Serious: Yes (Other)
  Sender: FDA-Public Use
  Company Number: US-BAYER-2011-011276

PATIENT
  Sex: Female

DRUGS (5)
  1. IBUPROFEN [Concomitant]
  2. VITAMIN E [Concomitant]
  3. SINUPRET [Concomitant]
  4. EMERGEN-C [Concomitant]
  5. AVELOX [Suspect]
     Indication: SINUSITIS
     Dosage: 400 MG, ONCE
     Route: 048
     Dates: start: 20110201, end: 20110201

REACTIONS (6)
  - PALPITATIONS [None]
  - PARANOIA [None]
  - ASTHENIA [None]
  - PANIC ATTACK [None]
  - CHILLS [None]
  - MYDRIASIS [None]
